FAERS Safety Report 4469948-6 (Version None)
Quarter: 2004Q4

REPORT INFORMATION
  Report Type: 
  Country: None (occurrence: None)
  Receive Date: 20041008
  Receipt Date: 20040810
  Transmission Date: 20050328
  Serious: Yes (Death)
  Sender: FDA-Public Use
  Company Number: US-BRISTOL-MYERS SQUIBB COMPANY-12665766

PATIENT
  Age: 66 Year
  Sex: Male

DRUGS (5)
  1. CARBOPLATIN [Suspect]
     Indication: SMALL CELL LUNG CANCER STAGE UNSPECIFIED
     Dosage: AUC 5.5 THERAPY DATES: 22-JAN TO 22-MAY-2003, 13-JUL TO 04-AUG-2004
     Route: 042
     Dates: start: 20040804, end: 20040804
  2. VP-16 [Concomitant]
     Indication: SMALL CELL LUNG CANCER STAGE UNSPECIFIED
     Dates: start: 20040713, end: 20040804
  3. ZOFRAN [Concomitant]
  4. GLUCOPHAGE [Concomitant]
  5. WELLBUTRIN [Concomitant]

REACTIONS (2)
  - ANAPHYLACTIC REACTION [None]
  - RESPIRATORY DISTRESS [None]
